FAERS Safety Report 5328755-2 (Version None)
Quarter: 2007Q2

REPORT INFORMATION
  Report Type: 
  Country: None (occurrence: None)
  Receive Date: 20070516
  Receipt Date: 20070516
  Transmission Date: 20071010
  Serious: No
  Sender: FDA-Public Use
  Company Number: None

PATIENT
  Sex: Female
  Weight: 113.3993 kg

DRUGS (3)
  1. YASMIN [Suspect]
     Indication: ABDOMINAL DISTENSION
  2. YASMIN [Suspect]
     Indication: DYSMENORRHOEA
  3. YASMIN [Suspect]
     Indication: MENSTRUAL DISORDER

REACTIONS (2)
  - PAIN [None]
  - URTICARIA [None]
